FAERS Safety Report 24905264 (Version 2)
Quarter: 2025Q1

REPORT INFORMATION
  Report Type: Spontaneous
  Country: US (occurrence: US)
  Receive Date: 20250130
  Receipt Date: 20250303
  Transmission Date: 20250408
  Serious: No
  Sender: PFIZER
  Company Number: US-PFIZER INC-PV202500011704

PATIENT
  Age: 60 Year
  Sex: Female

DRUGS (2)
  1. IBRANCE [Suspect]
     Active Substance: PALBOCICLIB
  2. LETROZOLE [Concomitant]
     Active Substance: LETROZOLE

REACTIONS (6)
  - Renal pain [Not Recovered/Not Resolved]
  - Nausea [Recovering/Resolving]
  - Epistaxis [Unknown]
  - Alopecia [Unknown]
  - White blood cell count decreased [Unknown]
  - Product dose omission in error [Unknown]
